FAERS Safety Report 6032522-4 (Version None)
Quarter: 2009Q1

REPORT INFORMATION
  Report Type: 
  Country: None (occurrence: None)
  Receive Date: 20090109
  Receipt Date: 20081104
  Transmission Date: 20090719
  Serious: No
  Sender: FDA-Public Use
  Company Number: A0754825A

PATIENT
  Age: 57 Year
  Sex: Female

DRUGS (6)
  1. TYKERB [Suspect]
     Indication: BREAST CANCER
     Dosage: 1000MG PER DAY
     Route: 048
     Dates: start: 20081018
  2. XELODA [Concomitant]
  3. CYTOXAN [Concomitant]
  4. PROVIGIL [Concomitant]
  5. ATIVAN [Concomitant]
  6. AMBIEN [Concomitant]

REACTIONS (2)
  - CELL MARKER INCREASED [None]
  - DIARRHOEA [None]
